FAERS Safety Report 4809671-9 (Version None)
Quarter: 2005Q4

REPORT INFORMATION
  Report Type: 
  Country: None (occurrence: None)
  Receive Date: 20051021
  Receipt Date: 20040609
  Transmission Date: 20060501
  Serious: No
  Sender: FDA-Public Use
  Company Number: USA040669715

PATIENT
  Sex: Female

DRUGS (1)
  1. ZYPREXA [Suspect]
     Indication: BIPOLAR I DISORDER

REACTIONS (1)
  - MENSTRUATION IRREGULAR [None]
